FAERS Safety Report 11468720 (Version 1)
Quarter: 2015Q3

REPORT INFORMATION
  Report Type: Report from Study
  Country: US (occurrence: US)
  Receive Date: 20150908
  Receipt Date: 20150908
  Transmission Date: 20151125
  Serious: Yes (Hospitalization, Other)
  Sender: FDA-Public Use
  Company Number: US-GLAXOSMITHKLINE-US2015GSK126526

PATIENT
  Age: 61 Year
  Sex: Female
  Weight: 79.37 kg

DRUGS (8)
  1. COMPAZINE [Concomitant]
     Active Substance: PROCHLORPERAZINE MALEATE
     Indication: NAUSEA
     Dosage: 10 MG, UNK
     Dates: start: 20120330
  2. PENTOXIFYLLINE. [Concomitant]
     Active Substance: PENTOXIFYLLINE
     Dosage: 400 MG, UNK
     Dates: start: 20141125
  3. EYLEA [Concomitant]
     Active Substance: AFLIBERCEPT
     Indication: MACULAR DEGENERATION
     Dosage: 2 MG, UNK
     Dates: start: 20030101
  4. MOTRIN [Concomitant]
     Active Substance: IBUPROFEN
     Indication: PAIN
     Dosage: 800 MG, UNK
     Dates: start: 20141203
  5. CABAZITAXEL [Suspect]
     Active Substance: CABAZITAXEL
     Indication: BREAST CANCER
     Dosage: 47 MG, UNK
     Route: 042
     Dates: start: 20141222
  6. OPIUM. [Concomitant]
     Active Substance: OPIUM
     Indication: PAIN
     Dosage: 10 MG, UNK
     Dates: start: 20140324
  7. TYKERB [Suspect]
     Active Substance: LAPATINIB DITOSYLATE
     Indication: BREAST CANCER
     Dosage: 1000 MG, UNK
     Route: 048
     Dates: start: 20141222
  8. VITAMIN E [Concomitant]
     Active Substance: .ALPHA.-TOCOPHEROL
     Dosage: 400 IU, UNK
     Dates: start: 20151125

REACTIONS (1)
  - Neutropenia [Recovering/Resolving]

NARRATIVE: CASE EVENT DATE: 20150101
